FAERS Safety Report 6301397-8 (Version None)
Quarter: 2009Q3

REPORT INFORMATION
  Report Type: 
  Country: None (occurrence: None)
  Receive Date: 20090805
  Receipt Date: 20090805
  Transmission Date: 20100115
  Serious: No
  Sender: FDA-Public Use
  Company Number: None

PATIENT
  Age: 38 Year
  Sex: Female
  Weight: 63.5036 kg

DRUGS (1)
  1. CIPRO [Suspect]
     Indication: CYSTITIS
     Dosage: 500MG 2XDAY PO
     Route: 048
     Dates: start: 20090717, end: 20090725

REACTIONS (9)
  - ARTHRALGIA [None]
  - BACK PAIN [None]
  - BURSITIS [None]
  - CRYING [None]
  - DYSSTASIA [None]
  - GAIT DISTURBANCE [None]
  - HYPOAESTHESIA [None]
  - INSOMNIA [None]
  - PARAESTHESIA [None]
